FAERS Safety Report 5502825-8 (Version None)
Quarter: 2007Q4

REPORT INFORMATION
  Report Type: 
  Country: None (occurrence: None)
  Receive Date: 20071029
  Receipt Date: 20071018
  Transmission Date: 20080405
  Serious: Yes (Other)
  Sender: FDA-Public Use
  Company Number: 230319M07USA

PATIENT
  Age: 49 Year
  Sex: Female
  Weight: 90.7194 kg

DRUGS (9)
  1. REBIF [Suspect]
     Indication: MULTIPLE SCLEROSIS
     Dosage: 44 MCG, 3 IN 1 WEEKS, SUBCUTANEOUS
     Route: 058
     Dates: start: 20050401
  2. NORTRIPTYLINE (NORTRIPTYLINE/00006501/) [Concomitant]
  3. DARVOCET [Concomitant]
  4. FLEXERIL [Concomitant]
  5. WELLBUTRIN [Concomitant]
  6. PRAVACHOL [Concomitant]
  7. NORVASC [Concomitant]
  8. NITROGLYCERIN [Concomitant]
  9. PREVACID [Concomitant]

REACTIONS (1)
  - PULMONARY HYPERTENSION [None]
